FAERS Safety Report 4374101-0 (Version None)
Quarter: 2004Q2

REPORT INFORMATION
  Report Type: 
  Country: None (occurrence: None)
  Receive Date: 20040602
  Receipt Date: 20040206
  Transmission Date: 20050107
  Serious: Yes (Death, Hospitalization)
  Sender: FDA-Public Use
  Company Number: 1557

PATIENT
  Age: 50 Year
  Sex: Male

DRUGS (1)
  1. AVINZA [Suspect]
     Indication: ANALGESIC EFFECT

REACTIONS (3)
  - HYPOVENTILATION [None]
  - PNEUMONIA ASPIRATION [None]
  - SEPSIS [None]
